FAERS Safety Report 10039923 (Version 1)
Quarter: 2014Q1

REPORT INFORMATION
  Report Type: Spontaneous
  Country: GB (occurrence: GB)
  Receive Date: 20140326
  Receipt Date: 20140326
  Transmission Date: 20141002
  Serious: Yes (Life-Threatening, Hospitalization, Other)
  Sender: FDA-Public Use
  Company Number: GB-PFIZER INC-2014084286

PATIENT
  Age: 61 Year
  Sex: Female

DRUGS (1)
  1. SUNITINIB MALATE [Suspect]
     Indication: NEUROENDOCRINE TUMOUR
     Dosage: UNK
     Route: 048
     Dates: start: 201307, end: 201309

REACTIONS (4)
  - Thrombotic microangiopathy [Recovered/Resolved]
  - Convulsion [Not Recovered/Not Resolved]
  - Renal failure [Unknown]
  - Neurological symptom [Not Recovered/Not Resolved]
